FAERS Safety Report 21429248 (Version 1)
Quarter: 2022Q4

REPORT INFORMATION
  Report Type: Spontaneous
  Country: ES (occurrence: ES)
  Receive Date: 20221009
  Receipt Date: 20221009
  Transmission Date: 20230113
  Serious: Yes (Death, Hospitalization)
  Sender: FDA-Public Use
  Company Number: None

PATIENT
  Age: 17 Year
  Sex: Male

DRUGS (5)
  1. LAMOTRIGINE [Suspect]
     Active Substance: LAMOTRIGINE
     Indication: Epilepsy
     Dosage: DURATION: 87 DAYS, LAMOTRIGINE (2579A)
     Route: 065
     Dates: start: 20220513, end: 20220807
  2. LAMOTRIGINE [Suspect]
     Active Substance: LAMOTRIGINE
     Dosage: 200 MILLIGRAM DAILY; 100-0-100 SINCE TWO WEEKS AGO,  LAMOTRIGINE (2579A)
     Route: 065
     Dates: start: 20220808, end: 20220822
  3. VALPROIC ACID [Suspect]
     Active Substance: VALPROIC ACID
     Indication: Epilepsy
     Dosage: PROGRESSIVE DOSE REDUCTION EVERY TWO WEEKS, DURATION: 76 DAYS, VALPROIC ACID (3194A)
     Route: 065
     Dates: start: 20220604, end: 20220818
  4. VALPROIC ACID [Suspect]
     Active Substance: VALPROIC ACID
     Dosage: VALPROIC ACID (3194A)
     Route: 065
     Dates: start: 20220819, end: 20220822
  5. VALPROIC ACID [Suspect]
     Active Substance: VALPROIC ACID
     Dosage: 1200 MILLIGRAM DAILY; 500-200-500, VALPROIC ACID (3194A)
     Route: 065
     Dates: start: 20211123, end: 20220603

REACTIONS (2)
  - Cardio-respiratory arrest [Fatal]
  - Brugada syndrome [Fatal]

NARRATIVE: CASE EVENT DATE: 20220822
